FAERS Safety Report 24417676 (Version 1)
Quarter: 2024Q4

REPORT INFORMATION
  Report Type: Spontaneous
  Country: SI (occurrence: SI)
  Receive Date: 20241009
  Receipt Date: 20241009
  Transmission Date: 20250115
  Serious: Yes (Other)
  Sender: NOVARTIS
  Company Number: SI-002147023-NVSC2024SI195697

PATIENT
  Age: 50 Year
  Sex: Male

DRUGS (2)
  1. KESIMPTA [Suspect]
     Active Substance: OFATUMUMAB
     Indication: Multiple sclerosis
     Dosage: UNK
     Route: 065
     Dates: start: 202112
  2. LEVETIRACETAM [Concomitant]
     Active Substance: LEVETIRACETAM
     Indication: Product used for unknown indication
     Dosage: 2000 MG
     Route: 065

REACTIONS (26)
  - Congenital musculoskeletal disorder of limbs [Unknown]
  - CSF protein increased [Recovering/Resolving]
  - CSF glucose decreased [Recovering/Resolving]
  - CSF lactate increased [Recovering/Resolving]
  - Upper motor neurone lesion [Unknown]
  - CSF leukocyte/erythrocyte ratio increased [Recovering/Resolving]
  - Malaise [Unknown]
  - Speech disorder [Unknown]
  - Hypoperfusion [Unknown]
  - Aphasia [Recovered/Resolved]
  - Body temperature increased [Recovered/Resolved]
  - Borrelia test [Unknown]
  - Blood glucose abnormal [Unknown]
  - Blood bilirubin increased [Unknown]
  - Gamma-glutamyltransferase increased [Unknown]
  - Mean cell haemoglobin concentration increased [Unknown]
  - Monocyte count increased [Unknown]
  - Blood fibrinogen increased [Unknown]
  - Blood potassium decreased [Unknown]
  - Blood alkaline phosphatase decreased [Unknown]
  - Mean cell volume abnormal [Unknown]
  - Paraesthesia [Unknown]
  - Ataxia [Unknown]
  - Illness [Unknown]
  - Nervous system disorder [Unknown]
  - Pleocytosis [Unknown]

NARRATIVE: CASE EVENT DATE: 20240701
